FAERS Safety Report 12937407 (Version 1)
Quarter: 2016Q4

REPORT INFORMATION
  Report Type: Spontaneous
  Country: US (occurrence: US)
  Receive Date: 20161114
  Receipt Date: 20161114
  Transmission Date: 20170207
  Serious: No
  Sender: FDA-Public Use
  Company Number: US-GALDERMA-US16003956

PATIENT
  Age: 41 Year
  Sex: Female

DRUGS (1)
  1. CLOBETASOL 0.05% SPRAY ACTAVIS [Suspect]
     Active Substance: CLOBETASOL
     Indication: ECZEMA
     Route: 061
     Dates: start: 2015

REACTIONS (2)
  - Drug ineffective [Recovered/Resolved]
  - Product use issue [Recovered/Resolved]

NARRATIVE: CASE EVENT DATE: 2015
